FAERS Safety Report 5084872-6 (Version None)
Quarter: 2006Q3

REPORT INFORMATION
  Report Type: 
  Country: None (occurrence: None)
  Receive Date: 20060815
  Receipt Date: 20060731
  Transmission Date: 20061208
  Serious: Yes (Life-Threatening)
  Sender: FDA-Public Use
  Company Number: 228278

PATIENT
  Age: 69 Year
  Sex: Female

DRUGS (4)
  1. MABTHERA (RITUXIMAB) CONC FOR SOLUTION FOR INFUSION [Suspect]
     Indication: HEPATOMEGALY
     Dosage: 375 MG/M2, INTRAVENOUS
     Route: 042
     Dates: start: 19990701
  2. ONCOVIN [Suspect]
     Indication: HEPATOMEGALY
     Dosage: 2 MG, INTRAVENOUS
     Route: 042
     Dates: start: 19990701
  3. CYCLOPHOSPHAMIDE [Suspect]
     Indication: HEPATOMEGALY
     Dosage: 750 MG/M2, INTRAVENOUS
     Route: 042
     Dates: start: 19990701
  4. DOXORUBICIN HCL [Suspect]
     Indication: HEPATOMEGALY
     Dosage: 500 MG/M2, INTRAVENOUS
     Route: 042
     Dates: start: 19990701

REACTIONS (1)
  - ACUTE LEUKAEMIA [None]
